FAERS Safety Report 14871754 (Version 2)
Quarter: 2018Q2

REPORT INFORMATION
  Report Type: Spontaneous
  Country: US (occurrence: US)
  Receive Date: 20180509
  Receipt Date: 20180604
  Transmission Date: 20180711
  Serious: No
  Sender: FDA-Public Use
  Company Number: US-TAKEDA-2018TUS016045

PATIENT
  Sex: Male
  Weight: 145.13 kg

DRUGS (5)
  1. ENTYVIO [Suspect]
     Active Substance: VEDOLIZUMAB
     Indication: CROHN^S DISEASE
     Dosage: 300 MG, UNK
     Route: 042
     Dates: start: 20180105
  2. OXYCODONE [Concomitant]
     Active Substance: OXYCODONE
     Indication: BACK DISORDER
     Dosage: UNK
     Route: 048
  3. APRISO [Concomitant]
     Active Substance: MESALAMINE
     Indication: CROHN^S DISEASE
     Dosage: 0.375 MG, QD
     Route: 042
     Dates: start: 201704
  4. OXYCODONE [Concomitant]
     Active Substance: OXYCODONE
     Indication: BACK PAIN
  5. AMBIEN [Concomitant]
     Active Substance: ZOLPIDEM TARTRATE
     Indication: INSOMNIA
     Dosage: 12.5 MG, UNK
     Route: 048

REACTIONS (1)
  - Weight increased [Unknown]
